FAERS Safety Report 9049718 (Version 1)
Quarter: 2013Q1

REPORT INFORMATION
  Report Type: Report from Study
  Country: US (occurrence: US)
  Receive Date: 20130205
  Receipt Date: 20130205
  Transmission Date: 20140127
  Serious: Yes (Death)
  Sender: FDA-Public Use
  Company Number: US-ROCHE-1180546

PATIENT
  Sex: Female

DRUGS (1)
  1. BONIVA [Suspect]
     Indication: SENILE OSTEOPOROSIS
     Route: 048

REACTIONS (1)
  - Myocardial infarction [Fatal]
